FAERS Safety Report 4862881-7 (Version None)
Quarter: 2005Q4

REPORT INFORMATION
  Report Type: 
  Country: None (occurrence: None)
  Receive Date: 20051221
  Receipt Date: 20050902
  Transmission Date: 20060501
  Serious: Yes (Disabling)
  Sender: FDA-Public Use
  Company Number: PHBS2005JP12901

PATIENT
  Age: 24 Year
  Sex: Male
  Weight: 57 kg

DRUGS (10)
  1. VOLTAREN [Suspect]
     Indication: NASOPHARYNGITIS
     Dosage: 75 MG/DAY
     Route: 048
     Dates: start: 20050815, end: 20050817
  2. RENAGEL [Concomitant]
     Indication: HYPERPHOSPHATAEMIA
     Dosage: 2 G/DAY
     Route: 048
  3. CALCIUM CARBONATE [Concomitant]
     Indication: HYPERPHOSPHATAEMIA
     Dosage: 3 G/DAY
     Route: 048
  4. CLARITHROMYCIN [Concomitant]
     Dosage: 400 MG/DAY
     Route: 048
     Dates: start: 20050815
  5. CEFZON [Concomitant]
     Dosage: 200 DF/DAY
     Route: 048
     Dates: start: 20050815
  6. TRANSAMIN [Concomitant]
     Dosage: 750 MG/DAY
     Route: 048
     Dates: start: 20050815
  7. DETANTOL [Concomitant]
     Indication: HYPERTENSION
     Dosage: 4 MG/DAY
     Route: 048
  8. SELOKEN [Concomitant]
     Indication: HYPERTENSION
     Dosage: 60 MG/DAY
     Route: 048
  9. ADALAT [Concomitant]
     Indication: HYPERTENSION
     Dosage: 20 MG/DAY
     Route: 048
  10. SELBEX [Concomitant]
     Dosage: 150 MG/DAY
     Route: 048

REACTIONS (7)
  - BLOOD CREATINE PHOSPHOKINASE INCREASED [None]
  - ECCHYMOSIS [None]
  - MUSCULAR WEAKNESS [None]
  - MYOSITIS [None]
  - NERVOUS SYSTEM DISORDER [None]
  - PAIN IN EXTREMITY [None]
  - RHABDOMYOLYSIS [None]
